FAERS Safety Report 23217455 (Version 1)
Quarter: 2023Q4

REPORT INFORMATION
  Report Type: Spontaneous
  Country: US (occurrence: None)
  Receive Date: 20231121
  Receipt Date: 20231121
  Transmission Date: 20240110
  Serious: Yes (Hospitalization, Other)
  Sender: FDA-Public Use
  Company Number: None

PATIENT
  Age: 29 Year
  Sex: Female
  Weight: 76.5 kg

DRUGS (7)
  1. DULOXETINE [Suspect]
     Active Substance: DULOXETINE
     Indication: Depression
     Dates: start: 20210115, end: 20220315
  2. DULOXETINE [Suspect]
     Active Substance: DULOXETINE
     Indication: Neuralgia
  3. DULOXETINE HYDROCHLORIDE [Concomitant]
     Active Substance: DULOXETINE HYDROCHLORIDE
  4. WELLBUTRIN XL [Concomitant]
     Active Substance: BUPROPION HYDROCHLORIDE
  5. DESVENLAFAXINE [Concomitant]
     Active Substance: DESVENLAFAXINE
  6. theralogix [Concomitant]
  7. Theranatal prenatal complete [Concomitant]

REACTIONS (13)
  - Therapy cessation [None]
  - Drug withdrawal syndrome [None]
  - Suicidal ideation [None]
  - Anger [None]
  - Affect lability [None]
  - Depression [None]
  - Anxiety [None]
  - Nausea [None]
  - Decreased appetite [None]
  - Electric shock sensation [None]
  - Mental disorder [None]
  - Night sweats [None]
  - Libido decreased [None]

NARRATIVE: CASE EVENT DATE: 20220128
